FAERS Safety Report 21357435 (Version 2)
Quarter: 2022Q4

REPORT INFORMATION
  Report Type: Spontaneous
  Country: US (occurrence: US)
  Receive Date: 20220921
  Receipt Date: 20221018
  Transmission Date: 20230112
  Serious: No
  Sender: FDA-Public Use
  Company Number: US-BRISTOL-MYERS SQUIBB COMPANY-2022-109183

PATIENT
  Age: 61 Year
  Sex: Female

DRUGS (1)
  1. ORENCIA [Suspect]
     Active Substance: ABATACEPT
     Indication: Rheumatoid arthritis
     Dosage: DOSE- 125MG/ML
     Route: 058
     Dates: start: 20210701

REACTIONS (4)
  - Injection site erythema [Unknown]
  - Drug ineffective [Unknown]
  - Injection site swelling [Unknown]
  - Injection site pruritus [Unknown]
